FAERS Safety Report 9465897 (Version 2)
Quarter: 2013Q3

REPORT INFORMATION
  Report Type: Spontaneous
  Country: DE (occurrence: DE)
  Receive Date: 20130820
  Receipt Date: 20130820
  Transmission Date: 20140515
  Serious: Yes (Other)
  Sender: FDA-Public Use
  Company Number: DE-ASTELLAS-2013EU001428

PATIENT
  Sex: Male
  Weight: 139 kg

DRUGS (2)
  1. PROGRAF [Suspect]
     Dosage: 5 MG, UNKNOWN/D
     Route: 065
  2. PROGRAF [Suspect]
     Dosage: 1 MG, BID
     Route: 065
     Dates: start: 201211

REACTIONS (8)
  - Coma hepatic [Recovered/Resolved]
  - Ileus paralytic [Recovered/Resolved]
  - Pruritus [Recovered/Resolved]
  - Memory impairment [Recovered/Resolved]
  - Weight increased [Recovered/Resolved]
  - Asthenia [Recovered/Resolved]
  - Procedural pain [Recovered/Resolved]
  - Visual impairment [Recovered/Resolved]
